FAERS Safety Report 4960254-X (Version None)
Quarter: 2006Q1

REPORT INFORMATION
  Report Type: 
  Country: None (occurrence: None)
  Receive Date: 20060328
  Receipt Date: 20060321
  Transmission Date: 20060701
  Serious: Yes (Other)
  Sender: FDA-Public Use
  Company Number: 2006040057

PATIENT
  Age: 41 Year
  Sex: Male
  Weight: 77.1115 kg

DRUGS (5)
  1. NEURONTIN [Suspect]
     Indication: NEURALGIA
     Dosage: (800 MG, 3 IN 1 D), ORAL
     Route: 048
     Dates: start: 20030501, end: 20051012
  2. METHADONE HCL [Concomitant]
  3. OXYCONTIN [Concomitant]
  4. VALIUM [Concomitant]
  5. PAXIL [Concomitant]

REACTIONS (1)
  - DRUG INEFFECTIVE [None]
